FAERS Safety Report 20836867 (Version 1)
Quarter: 2022Q2

REPORT INFORMATION
  Report Type: Spontaneous
  Country: US (occurrence: US)
  Receive Date: 20220517
  Receipt Date: 20220517
  Transmission Date: 20220721
  Serious: No
  Sender: FDA-Public Use
  Company Number: US-Hikma Pharmaceuticals USA Inc.-US-H14001-22-01022

PATIENT
  Sex: Male

DRUGS (1)
  1. TESTOSTERONE CYPIONATE [Suspect]
     Active Substance: TESTOSTERONE CYPIONATE
     Indication: Product used for unknown indication
     Route: 065

REACTIONS (8)
  - Anxiety [Unknown]
  - Paranoia [Unknown]
  - Feeling abnormal [Unknown]
  - Depression [Unknown]
  - Panic attack [Unknown]
  - Dysphoria [Unknown]
  - Feeling cold [Unknown]
  - Amnesia [Unknown]
